FAERS Safety Report 4894084-4 (Version None)
Quarter: 2006Q1

REPORT INFORMATION
  Report Type: 
  Country: None (occurrence: None)
  Receive Date: 20060127
  Receipt Date: 20050623
  Transmission Date: 20060701
  Serious: No
  Sender: FDA-Public Use
  Company Number: US-GLAXOSMITHKLINE-A0563921A

PATIENT
  Sex: Male

DRUGS (5)
  1. BUPROPION [Suspect]
     Indication: DEPRESSION
     Dosage: 150MG TWICE PER DAY
     Route: 048
     Dates: start: 20050601
  2. DEPAKOTE [Concomitant]
  3. LIPITOR [Concomitant]
  4. CLONAZEPAM [Concomitant]
  5. ASPIRIN [Concomitant]

REACTIONS (3)
  - HYPERTENSION [None]
  - HYPOAESTHESIA [None]
  - MUSCLE TIGHTNESS [None]
